FAERS Safety Report 4714288-0 (Version None)
Quarter: 2005Q3

REPORT INFORMATION
  Report Type: 
  Country: None (occurrence: None)
  Receive Date: 20050714
  Receipt Date: 20050707
  Transmission Date: 20060218
  Serious: Yes (Hospitalization)
  Sender: FDA-Public Use
  Company Number: CA-MERCK-0507CAN00033

PATIENT
  Age: 62 Year
  Sex: Female

DRUGS (2)
  1. FOSAMAX [Suspect]
     Route: 065
     Dates: start: 20030101, end: 20040101
  2. FOSAMAX [Suspect]
     Route: 048
     Dates: start: 20050601

REACTIONS (2)
  - DIVERTICULITIS [None]
  - FEMUR FRACTURE [None]
